FAERS Safety Report 16485211 (Version 1)
Quarter: 2019Q2

REPORT INFORMATION
  Report Type: Spontaneous
  Country: SE (occurrence: SE)
  Receive Date: 20190627
  Receipt Date: 20190627
  Transmission Date: 20190711
  Serious: Yes (Hospitalization)
  Sender: FDA-Public Use
  Company Number: SE-TEVA-2019-SE-1069930

PATIENT
  Age: 32 Year
  Sex: Female

DRUGS (5)
  1. ATARAX [Suspect]
     Active Substance: HYDROXYZINE HYDROCHLORIDE
     Route: 065
     Dates: start: 20190307, end: 20190307
  2. SERTRALINE [Suspect]
     Active Substance: SERTRALINE HYDROCHLORIDE
     Route: 065
     Dates: start: 20190307, end: 20190307
  3. OXASCAND [Suspect]
     Active Substance: OXAZEPAM
     Route: 065
     Dates: start: 20190307, end: 20190307
  4. LERGIGAN (PROMETHAZINE HYDROCHLORIDE) [Suspect]
     Active Substance: PROMETHAZINE HYDROCHLORIDE
     Route: 048
     Dates: start: 20190307, end: 20190307
  5. ZOPICLONE [Suspect]
     Active Substance: ZOPICLONE
     Route: 065

REACTIONS (5)
  - Depressed level of consciousness [Unknown]
  - Intentional overdose [Unknown]
  - Hypothermia [Unknown]
  - Gastrointestinal sounds abnormal [Unknown]
  - Intentional self-injury [Unknown]

NARRATIVE: CASE EVENT DATE: 20190307
